APPROVED DRUG PRODUCT: LAMISIL
Active Ingredient: TERBINAFINE HYDROCHLORIDE
Strength: EQ 250MG BASE **Federal Register determination that product was not discontinued or withdrawn for safety or effectiveness reasons**
Dosage Form/Route: TABLET;ORAL
Application: N020539 | Product #001
Applicant: NOVARTIS PHARMACEUTICALS CORP
Approved: May 10, 1996 | RLD: Yes | RS: No | Type: DISCN